FAERS Safety Report 18319162 (Version 1)
Quarter: 2020Q3

REPORT INFORMATION
  Report Type: Spontaneous
  Country: US (occurrence: US)
  Receive Date: 20200928
  Receipt Date: 20200928
  Transmission Date: 20201103
  Serious: Yes (Other)
  Sender: FDA-Public Use
  Company Number: None

PATIENT
  Age: 37 Year
  Sex: Female
  Weight: 64 kg

DRUGS (1)
  1. LEXAPRO [Suspect]
     Active Substance: ESCITALOPRAM OXALATE
     Indication: GENERALISED ANXIETY DISORDER
     Dosage: ?          QUANTITY:1 TABLET(S);?
     Route: 048
     Dates: start: 20120314, end: 20150113

REACTIONS (10)
  - Sexual dysfunction [None]
  - Restless legs syndrome [None]
  - Hypertonic bladder [None]
  - Disturbance in sexual arousal [None]
  - Drug ineffective [None]
  - Urethral disorder [None]
  - Female orgasmic disorder [None]
  - Orgasm abnormal [None]
  - Vulvovaginal pain [None]
  - Genital hypoaesthesia [None]

NARRATIVE: CASE EVENT DATE: 20120314
